FAERS Safety Report 17678818 (Version 2)
Quarter: 2020Q2

REPORT INFORMATION
  Report Type: Spontaneous
  Country: US (occurrence: US)
  Receive Date: 20200417
  Receipt Date: 20200530
  Transmission Date: 20200714
  Serious: Yes (Other)
  Sender: FDA-Public Use
  Company Number: US-AUROBINDO-AUR-APL-2020-018773

PATIENT
  Age: 46 Year
  Sex: Female

DRUGS (2)
  1. OMEPRAZOLE. [Suspect]
     Active Substance: OMEPRAZOLE
     Indication: GASTROOESOPHAGEAL REFLUX DISEASE
     Dosage: 40 MILLIGRAM, DAILY
     Route: 048
     Dates: start: 2015
  2. OMEPRAZOLE. [Suspect]
     Active Substance: OMEPRAZOLE
     Dosage: UNK
     Route: 048
     Dates: start: 2017

REACTIONS (8)
  - Keratic precipitates [Recovered/Resolved]
  - Photophobia [Recovered/Resolved]
  - Uveitis [Recovered/Resolved]
  - Vitritis [Recovered/Resolved]
  - Ocular hyperaemia [Recovered/Resolved]
  - Vitreous floaters [Recovered/Resolved]
  - Iridocyclitis [Recovered/Resolved]
  - Vitreous opacities [Recovered/Resolved]

NARRATIVE: CASE EVENT DATE: 2015
